FAERS Safety Report 8371597-4 (Version None)
Quarter: 2012Q2

REPORT INFORMATION
  Report Type: 
  Country: None (occurrence: None)
  Receive Date: 20120518
  Receipt Date: 20120515
  Transmission Date: 20120825
  Serious: Yes (Death)
  Sender: FDA-Public Use
  Company Number: US-ABBOTT-12P-163-0935330-00

PATIENT
  Age: 32 Year
  Sex: Female

DRUGS (2)
  1. KALETRA [Suspect]
     Indication: ANTIVIRAL TREATMENT
     Route: 048
     Dates: start: 20101207
  2. ISENTRESS [Suspect]
     Indication: ANTIVIRAL TREATMENT
     Route: 048
     Dates: start: 20101207

REACTIONS (1)
  - SQUAMOUS CELL CARCINOMA [None]
